FAERS Safety Report 6752190-3 (Version None)
Quarter: 2010Q2

REPORT INFORMATION
  Report Type: 
  Country: None (occurrence: None)
  Receive Date: 20100602
  Receipt Date: 20100519
  Transmission Date: 20101027
  Serious: Yes (Other)
  Sender: FDA-Public Use
  Company Number: US-JNJFOC-20100508835

PATIENT
  Sex: Male

DRUGS (3)
  1. IBUPROFEN [Suspect]
     Indication: MUSCULOSKELETAL PAIN
     Dosage: PATIENT TOOK IBUPROFEN ALMOST DAILY DURING CYCLE 3.
     Route: 065
  2. SORAFENIB [Concomitant]
     Indication: RENAL CANCER
  3. SUTENT [Concomitant]
     Indication: RENAL CANCER

REACTIONS (2)
  - ABDOMINAL PAIN [None]
  - ACUTE MYOCARDIAL INFARCTION [None]
